FAERS Safety Report 4979732-2 (Version None)
Quarter: 2006Q2

REPORT INFORMATION
  Report Type: 
  Country: None (occurrence: None)
  Receive Date: 20060418
  Receipt Date: 20060405
  Transmission Date: 20061013
  Serious: Yes (Other)
  Sender: FDA-Public Use
  Company Number: 2006049206

PATIENT
  Age: 40 Year
  Sex: Female

DRUGS (3)
  1. PREGABALIN (PREGABALIN) [Suspect]
     Indication: EPILEPSY
     Dosage: 200 MG (100 MG, 2 IN 1 D), ORAL
     Route: 048
     Dates: start: 20051201
  2. TEGRETOL [Concomitant]
  3. GABAPENTIN [Concomitant]

REACTIONS (3)
  - BENIGN BREAST NEOPLASM [None]
  - BREAST OEDEMA [None]
  - WEIGHT INCREASED [None]
